FAERS Safety Report 9965265 (Version 1)
Quarter: 2014Q1

REPORT INFORMATION
  Report Type: Report from Study
  Country: US (occurrence: US)
  Receive Date: 20140305
  Receipt Date: 20140305
  Transmission Date: 20141002
  Serious: No
  Sender: FDA-Public Use
  Company Number: US-ABBVIE-13P-163-1124828-00

PATIENT
  Age: 54 Year
  Sex: Female
  Weight: 99.88 kg

DRUGS (5)
  1. HUMIRA [Suspect]
     Indication: PSORIASIS
     Dates: start: 201305, end: 20130713
  2. ALBUTEROL [Concomitant]
     Indication: ASTHMA
  3. CALCIUM [Concomitant]
     Indication: MINERAL SUPPLEMENTATION
  4. MULTIVITAMIN [Concomitant]
     Indication: VITAMIN SUPPLEMENTATION
  5. TUMS [Concomitant]
     Indication: DYSPEPSIA

REACTIONS (1)
  - Psoriasis [Not Recovered/Not Resolved]
